FAERS Safety Report 7950657-3 (Version None)
Quarter: 2011Q4

REPORT INFORMATION
  Report Type: 
  Country: None (occurrence: None)
  Receive Date: 20111201
  Receipt Date: 20111118
  Transmission Date: 20120403
  Serious: Yes (Hospitalization)
  Sender: FDA-Public Use
  Company Number: US-RANBAXY-2011US-50674

PATIENT
  Age: 15 Month
  Sex: Male

DRUGS (2)
  1. ONDANSETRON [Suspect]
     Indication: PRODUCT USED FOR UNKNOWN INDICATION
     Dosage: UNK, UNK
     Route: 048
  2. ONDANSETRON [Suspect]
     Dosage: UNK, UNK
     Route: 048

REACTIONS (5)
  - SINUS TACHYCARDIA [None]
  - OVERDOSE [None]
  - ELECTROCARDIOGRAM QT PROLONGED [None]
  - MENTAL STATUS CHANGES [None]
  - FLUSHING [None]
